FAERS Safety Report 20318691 (Version 1)
Quarter: 2022Q1

REPORT INFORMATION
  Report Type: Spontaneous
  Country: US (occurrence: None)
  Receive Date: 20220109
  Receipt Date: 20220109
  Transmission Date: 20220424
  Serious: Yes (Disabling)
  Sender: FDA-Public Use
  Company Number: None

PATIENT
  Age: 71 Year
  Sex: Female
  Weight: 62.1 kg

DRUGS (5)
  1. PROLIA [Suspect]
     Active Substance: DENOSUMAB
     Indication: Osteoporosis
     Dosage: OTHER FREQUENCY : 6 MONTHS;?
     Route: 058
     Dates: start: 20210624, end: 20210624
  2. hctz for peripheral edema [Concomitant]
  3. nasonex for allergies [Concomitant]
  4. VITAMIN D NOS [Concomitant]
     Active Substance: VITAMIN D NOS
  5. CLARITIN [Concomitant]
     Active Substance: LORATADINE

REACTIONS (15)
  - Dehydration [None]
  - Heat exhaustion [None]
  - Sinusitis [None]
  - Ear congestion [None]
  - Ear pain [None]
  - Blood urea increased [None]
  - Glomerular filtration rate decreased [None]
  - Alopecia [None]
  - Eczema [None]
  - Tinnitus [None]
  - Renal failure [None]
  - Hyperhidrosis [None]
  - Nausea [None]
  - Flank pain [None]
  - Blood urea nitrogen/creatinine ratio increased [None]

NARRATIVE: CASE EVENT DATE: 20210725
